FAERS Safety Report 16426787 (Version 2)
Quarter: 2019Q2

REPORT INFORMATION
  Report Type: Spontaneous
  Country: DE (occurrence: DE)
  Receive Date: 20190613
  Receipt Date: 20190619
  Transmission Date: 20190711
  Serious: Yes (Hospitalization, Other)
  Sender: FDA-Public Use
  Company Number: DE-MYLANLABS-2019M1054667

PATIENT
  Age: 28 Year
  Sex: Female

DRUGS (9)
  1. FIBRINOGEN [Concomitant]
     Active Substance: FIBRINOGEN HUMAN
     Indication: UTERINE HAEMORRHAGE
     Dosage: 4 GRAM
     Route: 065
  2. TRANEXAMIC ACID. [Suspect]
     Active Substance: TRANEXAMIC ACID
     Indication: INTRAPARTUM HAEMORRHAGE
     Dosage: 2 GRAM
     Route: 065
  3. SULPROSTONE [Concomitant]
     Active Substance: SULPROSTONE
     Indication: PRODUCT USED FOR UNKNOWN INDICATION
     Route: 065
  4. PLASMA [Concomitant]
     Active Substance: HUMAN PLASMA
     Indication: PRODUCT USED FOR UNKNOWN INDICATION
     Dosage: 4 DOSES  FREE-DRIED PLASMA
     Route: 065
  5. PPSB                               /01126001/ [Concomitant]
     Active Substance: COAGULATION FACTOR IX HUMAN
     Indication: UTERINE HAEMORRHAGE
     Dosage: 4000 INTERNATIONAL UNIT
     Route: 065
  6. PPSB                               /01126001/ [Concomitant]
     Active Substance: COAGULATION FACTOR IX HUMAN
     Indication: INTRAPARTUM HAEMORRHAGE
  7. TRANEXAMIC ACID. [Suspect]
     Active Substance: TRANEXAMIC ACID
     Indication: UTERINE HAEMORRHAGE
  8. FIBRINOGEN [Concomitant]
     Active Substance: FIBRINOGEN HUMAN
     Indication: INTRAPARTUM HAEMORRHAGE
  9. OXYTOCIN. [Concomitant]
     Active Substance: OXYTOCIN
     Indication: PRODUCT USED FOR UNKNOWN INDICATION
     Route: 065

REACTIONS (5)
  - Pleural effusion [Unknown]
  - Renal cortical necrosis [Recovering/Resolving]
  - Renal failure [Recovering/Resolving]
  - Thrombotic microangiopathy [Unknown]
  - Renal ischaemia [Recovering/Resolving]
